FAERS Safety Report 6639429-X (Version None)
Quarter: 2010Q1

REPORT INFORMATION
  Report Type: 
  Country: None (occurrence: None)
  Receive Date: 20100315
  Receipt Date: 20100309
  Transmission Date: 20100710
  Serious: Yes (Life-Threatening)
  Sender: FDA-Public Use
  Company Number: 520850

PATIENT
  Age: 53 Year
  Sex: Male
  Weight: 100.8 kg

DRUGS (3)
  1. HYDROMORPHONE HYDROCHLORIDE [Suspect]
     Indication: DRUG USE FOR UNKNOWN INDICATION
     Dosage: 2 MG 2 DAY INTRAVENOUS
     Route: 042
     Dates: start: 20100301
  2. HYDROMORPHONE HYDROCHLORIDE [Suspect]
     Indication: DRUG USE FOR UNKNOWN INDICATION
     Dosage: 2 MG 2 DAY INTRAVENOUS
     Route: 042
     Dates: start: 20100301
  3. ONDANSETRON [Concomitant]

REACTIONS (2)
  - APNOEA [None]
  - CYANOSIS [None]
